FAERS Safety Report 8597314-0 (Version None)
Quarter: 2012Q3

REPORT INFORMATION
  Report Type: 
  Country: None (occurrence: None)
  Receive Date: 20120816
  Receipt Date: 20120813
  Transmission Date: 20120928
  Serious: No
  Sender: FDA-Public Use
  Company Number: US-PFIZER INC-2012131641

PATIENT
  Age: 60 Year
  Sex: Female

DRUGS (3)
  1. LIPITOR [Suspect]
     Dosage: 20 MG, T HS
     Route: 048
  2. PRILOSEC [Concomitant]
     Dosage: UNK
  3. LATANOPROST [Suspect]
     Dosage: 0.005%, T GGT EACH EYE HS

REACTIONS (1)
  - BACK PAIN [None]
